FAERS Safety Report 10469936 (Version 1)
Quarter: 2014Q3

REPORT INFORMATION
  Report Type: Spontaneous
  Country: US (occurrence: None)
  Receive Date: 20140922
  Receipt Date: 20140922
  Transmission Date: 20150326
  Serious: No
  Sender: FDA-Public Use
  Company Number: None

PATIENT
  Age: 59 Year
  Sex: Male

DRUGS (1)
  1. LEVOFLOXACIN [Suspect]
     Active Substance: LEVOFLOXACIN
     Indication: BRONCHITIS

REACTIONS (6)
  - Dizziness [None]
  - Insomnia [None]
  - Syncope [None]
  - Weight decreased [None]
  - Joint swelling [None]
  - Nausea [None]

NARRATIVE: CASE EVENT DATE: 20140910
